FAERS Safety Report 10080752 (Version 1)
Quarter: 2014Q2

REPORT INFORMATION
  Report Type: Report from Study
  Country: US (occurrence: US)
  Receive Date: 20140416
  Receipt Date: 20140416
  Transmission Date: 20141212
  Serious: Yes (Other)
  Sender: FDA-Public Use
  Company Number: US-ROCHE-1355640

PATIENT
  Sex: Female
  Weight: 74.93 kg

DRUGS (13)
  1. CELLCEPT [Suspect]
     Indication: CONNECTIVE TISSUE DISORDER
     Dosage: DEC/2011
     Route: 048
  2. CELLCEPT [Suspect]
     Indication: ARTERITIS
  3. CELLCEPT [Suspect]
     Indication: VASCULITIS
  4. PRILOSEC [Concomitant]
     Route: 048
  5. OXYCONTIN [Concomitant]
     Dosage: SUSTAINED RELEASE
     Route: 048
  6. ARICEPT [Concomitant]
     Route: 048
  7. SYNTHROID [Concomitant]
     Dosage: 75MCG
     Route: 048
  8. CELEXA (UNITED STATES) [Concomitant]
     Route: 048
  9. DELTASONE [Concomitant]
     Route: 048
  10. AMBIEN [Concomitant]
     Route: 048
  11. COUMADIN [Concomitant]
     Route: 048
  12. LEVOXYL [Concomitant]
     Dosage: 75MCG
     Route: 048
  13. CALCIUM CARBONATE [Concomitant]
     Dosage: CENTRUM SINGLES CALCIUM
     Route: 048

REACTIONS (4)
  - Squamous cell carcinoma [Unknown]
  - Fatigue [Unknown]
  - Osteoarthritis [Unknown]
  - Hypersomnia [Unknown]
